FAERS Safety Report 6582521-9 (Version None)
Quarter: 2010Q1

REPORT INFORMATION
  Report Type: 
  Country: None (occurrence: None)
  Receive Date: 20100216
  Receipt Date: 20100204
  Transmission Date: 20100710
  Serious: Yes (Hospitalization, Other)
  Sender: FDA-Public Use
  Company Number: PHHY2008JP29890

PATIENT
  Age: 68 Year
  Sex: Female
  Weight: 48 kg

DRUGS (2)
  1. GLEEVEC [Suspect]
     Indication: GASTROINTESTINAL STROMAL TUMOUR
     Dosage: 400 MG/DAY
     Route: 048
     Dates: start: 20080301, end: 20080501
  2. GLEEVEC [Suspect]
     Dosage: 200 MG/DAY
     Route: 048

REACTIONS (7)
  - ANAEMIA [None]
  - DECREASED APPETITE [None]
  - GASTRECTOMY [None]
  - GENERALISED OEDEMA [None]
  - LAPAROTOMY [None]
  - MALIGNANT NEOPLASM PROGRESSION [None]
  - PLEURAL EFFUSION [None]
